FAERS Safety Report 17892360 (Version 2)
Quarter: 2020Q2

REPORT INFORMATION
  Report Type: Spontaneous
  Country: US (occurrence: US)
  Receive Date: 20200612
  Receipt Date: 20200629
  Transmission Date: 20200714
  Serious: Yes (Death, Other)
  Sender: FDA-Public Use
  Company Number: US-RIGEL PHARMACEUTICALS, INC.-2020FOS000280

PATIENT
  Age: 52 Year
  Sex: Female
  Weight: 61.22 kg

DRUGS (2)
  1. TAVALISSE [Suspect]
     Active Substance: FOSTAMATINIB
     Dosage: 100 MG, BID
     Route: 048
     Dates: start: 20200229, end: 20200415
  2. TAVALISSE [Suspect]
     Active Substance: FOSTAMATINIB
     Indication: IMMUNE THROMBOCYTOPENIA
     Dosage: 150 MG, BID
     Route: 048
     Dates: start: 20200416, end: 20200602

REACTIONS (2)
  - Cardiac arrest [Unknown]
  - Death [Fatal]

NARRATIVE: CASE EVENT DATE: 20200602
